FAERS Safety Report 4822358-1 (Version None)
Quarter: 2005Q4

REPORT INFORMATION
  Report Type: 
  Country: None (occurrence: None)
  Receive Date: 20051108
  Receipt Date: 20051024
  Transmission Date: 20060501
  Serious: Yes (Other)
  Sender: FDA-Public Use
  Company Number: JP-BRISTOL-MYERS SQUIBB COMPANY-13170006

PATIENT
  Age: 51 Year
  Sex: Female

DRUGS (4)
  1. CYCLOPHOSPHAMIDE [Suspect]
     Indication: METASTASIS
  2. PHENYTOIN [Interacting]
     Indication: CONVULSION
     Route: 048
  3. DOXIFLURIDINE [Interacting]
     Indication: METASTASIS
  4. MEDROXYPROGESTERONE ACETATE [Suspect]
     Indication: METASTASIS

REACTIONS (2)
  - DRUG LEVEL INCREASED [None]
  - GAIT DISTURBANCE [None]
